FAERS Safety Report 6685107-0 (Version None)
Quarter: 2010Q2

REPORT INFORMATION
  Report Type: 
  Country: None (occurrence: None)
  Receive Date: 20100416
  Receipt Date: 20090427
  Transmission Date: 20101027
  Serious: Yes (Other)
  Sender: FDA-Public Use
  Company Number: US-BRISTOL-MYERS SQUIBB COMPANY-14604029

PATIENT
  Age: 49 Year
  Sex: Female

DRUGS (2)
  1. CARBOPLATIN [Suspect]
     Dosage: 1 DF = AUC OF 6.
  2. TAXOTERE [Suspect]
     Indication: BREAST CANCER
     Dosage: FORM:SOL FOR INJ. 120MG CYC 3:26JAN,19FEB,17MAR09. DURA:7WKS2DAYS. REDUCD:30MG/WK FOR 3WK.
     Route: 042
     Dates: start: 20090126, end: 20090317

REACTIONS (1)
  - NEUROPATHY PERIPHERAL [None]
